FAERS Safety Report 23458587 (Version 1)
Quarter: 2024Q1

REPORT INFORMATION
  Report Type: Spontaneous
  Country: US (occurrence: US)
  Receive Date: 20240130
  Receipt Date: 20240130
  Transmission Date: 20240410
  Serious: Yes (Life-Threatening, Hospitalization, Other)
  Sender: FDA-Public Use
  Company Number: US-AMGEN-USASP2024013507

PATIENT
  Age: 16 Year
  Sex: Male

DRUGS (1)
  1. RITUXIMAB [Suspect]
     Active Substance: RITUXIMAB
     Indication: White matter lesion
     Dosage: 1 GRAM X 2 DOSES
     Route: 065
     Dates: start: 202203

REACTIONS (7)
  - Status epilepticus [Unknown]
  - Parainfluenzae virus infection [Unknown]
  - Central nervous system lesion [Unknown]
  - Hereditary optic atrophy [Unknown]
  - COVID-19 [Unknown]
  - Drug ineffective for unapproved indication [Unknown]
  - Off label use [Unknown]

NARRATIVE: CASE EVENT DATE: 20220501
